FAERS Safety Report 22234404 (Version 1)
Quarter: 2023Q2

REPORT INFORMATION
  Report Type: Spontaneous
  Country: US (occurrence: None)
  Receive Date: 20230419
  Receipt Date: 20230419
  Transmission Date: 20230722
  Serious: Yes (Disabling)
  Sender: FDA-Public Use
  Company Number: None

PATIENT
  Age: 29 Year
  Sex: Male
  Weight: 80.1 kg

DRUGS (1)
  1. HERBALS\MITRAGYNINE [Suspect]
     Active Substance: HERBALS\MITRAGYNINE
     Indication: Disturbance in attention
     Dates: start: 20220308, end: 20230417

REACTIONS (7)
  - Drug withdrawal syndrome [None]
  - Vomiting [None]
  - Dehydration [None]
  - Pain [None]
  - Depression [None]
  - Anxiety [None]
  - Urine amphetamine positive [None]

NARRATIVE: CASE EVENT DATE: 20230415
